FAERS Safety Report 25084327 (Version 1)
Quarter: 2025Q1

REPORT INFORMATION
  Report Type: Report from Study
  Country: US (occurrence: US)
  Receive Date: 20250317
  Receipt Date: 20250317
  Transmission Date: 20250409
  Serious: Yes (Hospitalization, Other)
  Sender: ABBVIE
  Company Number: US-ABBVIE-6177738

PATIENT
  Age: 42 Year
  Sex: Male

DRUGS (1)
  1. CREON [Suspect]
     Active Substance: PANCRELIPASE AMYLASE\PANCRELIPASE LIPASE\PANCRELIPASE PROTEASE
     Indication: Pancreatic failure
     Route: 048
     Dates: start: 2001

REACTIONS (13)
  - Vasculitis [Recovered/Resolved]
  - Myocardial infarction [Recovered/Resolved]
  - Hodgkin^s disease [Recovered/Resolved]
  - Steatorrhoea [Not Recovered/Not Resolved]
  - Pulmonary vasculitis [Recovered/Resolved]
  - Inappropriate schedule of product administration [Not Recovered/Not Resolved]
  - Renal vasculitis [Recovered/Resolved]
  - Chronic kidney disease [Not Recovered/Not Resolved]
  - Cardiac failure congestive [Unknown]
  - Pancreatic carcinoma [Unknown]
  - Gastrectomy [Unknown]
  - Cholecystectomy [Unknown]
  - Weight decreased [Not Recovered/Not Resolved]

NARRATIVE: CASE EVENT DATE: 20010101
